FAERS Safety Report 6897489-5 (Version None)
Quarter: 2010Q3

REPORT INFORMATION
  Report Type: 
  Country: None (occurrence: None)
  Receive Date: 20100802
  Receipt Date: 20070615
  Transmission Date: 20110219
  Serious: No
  Sender: FDA-Public Use
  Company Number: US-PFIZER INC-2007049141

PATIENT
  Sex: Female
  Weight: 61.363 kg

DRUGS (8)
  1. LYRICA [Suspect]
     Indication: MIGRAINE
     Dates: start: 20061101
  2. LAMICTAL [Concomitant]
  3. LEXAPRO [Concomitant]
  4. ZOCOR [Concomitant]
  5. SOMA [Concomitant]
  6. AMBIEN [Concomitant]
  7. SEROQUEL [Concomitant]
  8. DICLOFENAC [Concomitant]

REACTIONS (1)
  - MICTURITION URGENCY [None]
